FAERS Safety Report 8060841-9 (Version None)
Quarter: 2012Q1

REPORT INFORMATION
  Report Type: 
  Country: None (occurrence: None)
  Receive Date: 20120120
  Receipt Date: 20110208
  Transmission Date: 20120608
  Serious: No
  Sender: FDA-Public Use
  Company Number: US-ALLERGAN-1101947US

PATIENT
  Age: 70 Year
  Sex: Male

DRUGS (3)
  1. RESTASIS [Suspect]
     Indication: DRY EYE
     Dosage: 1 GTT, BID
     Route: 047
     Dates: start: 20110108
  2. EYE SALVE OINTMENT [Concomitant]
  3. SYSTANE BALANCE [Concomitant]

REACTIONS (2)
  - EYE INFECTION [None]
  - CONTUSION [None]
